FAERS Safety Report 5546249-6 (Version None)
Quarter: 2007Q4

REPORT INFORMATION
  Report Type: 
  Country: None (occurrence: None)
  Receive Date: 20071211
  Receipt Date: 20071128
  Transmission Date: 20080405
  Serious: Yes (Other)
  Sender: FDA-Public Use
  Company Number: CH-AMGEN-US248569

PATIENT
  Age: 36 Year
  Sex: Female

DRUGS (1)
  1. ENBREL [Suspect]
     Indication: ANKYLOSING SPONDYLITIS
     Dates: start: 20050601

REACTIONS (5)
  - GRANULOMA ANNULARE [None]
  - LIPOMA [None]
  - MELANOCYTIC NAEVUS [None]
  - RHEUMATOID NODULE [None]
  - SYNOVIAL CYST [None]
